FAERS Safety Report 12272449 (Version 3)
Quarter: 2016Q2

REPORT INFORMATION
  Report Type: Report from Study
  Country: US (occurrence: US)
  Receive Date: 20160415
  Receipt Date: 20160420
  Transmission Date: 20160815
  Serious: Yes (Death, Hospitalization)
  Sender: FDA-Public Use
  Company Number: US-JNJFOC-20160314499

PATIENT
  Age: 67 Year
  Sex: Male
  Weight: 101 kg

DRUGS (1)
  1. IMBRUVICA [Suspect]
     Active Substance: IBRUTINIB
     Indication: CHRONIC LYMPHOCYTIC LEUKAEMIA
     Route: 048
     Dates: start: 20151116

REACTIONS (2)
  - Dizziness [Unknown]
  - Disease progression [Fatal]

NARRATIVE: CASE EVENT DATE: 20160217
